FAERS Safety Report 12358218 (Version 6)
Quarter: 2020Q1

REPORT INFORMATION
  Report Type: Report from Study
  Country: GB (occurrence: GB)
  Receive Date: 20160512
  Receipt Date: 20200320
  Transmission Date: 20200409
  Serious: Yes (Hospitalization, Other)
  Sender: FDA-Public Use
  Company Number: PHHY2015GB042680

PATIENT
  Age: 38 Year
  Sex: Female
  Weight: 68.8 kg

DRUGS (1)
  1. GILENYA [Suspect]
     Active Substance: FINGOLIMOD HYDROCHLORIDE
     Indication: MULTIPLE SCLEROSIS
     Dosage: 0.5 MG, QD
     Route: 048
     Dates: start: 20150121

REACTIONS (15)
  - Central nervous system lesion [Recovered/Resolved with Sequelae]
  - Urinary tract infection [Recovered/Resolved]
  - White blood cell count decreased [Unknown]
  - Vertigo [Unknown]
  - Vestibular migraine [Recovering/Resolving]
  - Fatigue [Recovered/Resolved]
  - Vision blurred [Unknown]
  - Lymphocyte count decreased [Unknown]
  - Nystagmus [Unknown]
  - Vision blurred [Recovered/Resolved]
  - Asthenia [Unknown]
  - Discomfort [Recovered/Resolved]
  - Sensory loss [Recovered/Resolved]
  - Hypoaesthesia [Unknown]
  - Urinary incontinence [Recovering/Resolving]

NARRATIVE: CASE EVENT DATE: 20150216
